FAERS Safety Report 8285868-3 (Version None)
Quarter: 2012Q2

REPORT INFORMATION
  Report Type: 
  Country: None (occurrence: None)
  Receive Date: 20120413
  Receipt Date: 20120406
  Transmission Date: 20120825
  Serious: Yes (Hospitalization)
  Sender: FDA-Public Use
  Company Number: US-ELI_LILLY_AND_COMPANY-US201204002858

PATIENT
  Age: 56 Year
  Sex: Female

DRUGS (2)
  1. CORTICOSTEROIDS [Concomitant]
  2. FORTEO [Suspect]
     Indication: BONE DISORDER
     Dosage: 20 UG, QD

REACTIONS (2)
  - PAINFUL DEFAECATION [None]
  - PANCREATITIS [None]
